FAERS Safety Report 9169318 (Version 1)
Quarter: 2013Q1

REPORT INFORMATION
  Report Type: Spontaneous
  Country: FR (occurrence: FR)
  Receive Date: 20130318
  Receipt Date: 20130318
  Transmission Date: 20140127
  Serious: Yes (Other)
  Sender: FDA-Public Use
  Company Number: FR-009507513-1210FRA005178

PATIENT
  Sex: Female

DRUGS (1)
  1. TIENAM 500MG/500MG, POUDRE POUR PERFUSION [Suspect]
     Indication: KIDNEY INFECTION
     Dosage: 500 MG, TID
     Dates: start: 20120828, end: 20120831

REACTIONS (1)
  - Hearing impaired [Recovering/Resolving]
